FAERS Safety Report 17849112 (Version 1)
Quarter: 2020Q2

REPORT INFORMATION
  Report Type: Report from Study
  Country: None (occurrence: US)
  Receive Date: 20200602
  Receipt Date: 20200602
  Transmission Date: 20200714
  Serious: Yes (Other)
  Sender: FDA-Public Use
  Company Number: US-BIOVITRUM-2019US3888

PATIENT
  Sex: Male

DRUGS (1)
  1. KINERET [Suspect]
     Active Substance: ANAKINRA
     Indication: SYSTEMIC INFLAMMATORY RESPONSE SYNDROME
     Route: 058

REACTIONS (2)
  - Off label use [Not Recovered/Not Resolved]
  - Sinusitis bacterial [Unknown]
